FAERS Safety Report 11012465 (Version 1)
Quarter: 2015Q1

REPORT INFORMATION
  Report Type: Spontaneous
  Country: US (occurrence: None)
  Receive Date: 20150331
  Receipt Date: 20150331
  Transmission Date: 20150721
  Serious: Yes (Hospitalization)
  Sender: FDA-Public Use
  Company Number: 2014000048A

PATIENT
  Age: 50 Year
  Sex: Female

DRUGS (4)
  1. METAXALONE (METAXALONE) [Concomitant]
     Active Substance: METAXALONE
  2. LIORESAL [Concomitant]
     Active Substance: BACLOFEN
  3. TRAZODONE [Suspect]
     Active Substance: TRAZODONE HYDROCHLORIDE
     Indication: INSOMNIA
  4. DULOXETINE (DULOXETINE) [Suspect]
     Active Substance: DULOXETINE
     Indication: DEPRESSION
     Dosage: ONE DOSE

REACTIONS (12)
  - Confusional state [None]
  - Labelled drug-drug interaction medication error [None]
  - Agitation [None]
  - Social avoidant behaviour [None]
  - Tachycardia [None]
  - Speech disorder [None]
  - Off label use [None]
  - Serotonin syndrome [None]
  - Mydriasis [None]
  - Nausea [None]
  - Lethargy [None]
  - Abdominal pain [None]
